FAERS Safety Report 18627129 (Version 2)
Quarter: 2021Q1

REPORT INFORMATION
  Report Type: Spontaneous
  Country: US (occurrence: US)
  Receive Date: 20201217
  Receipt Date: 20210330
  Transmission Date: 20210419
  Serious: No
  Sender: FDA-Public Use
  Company Number: US-SA-2020SA360919

PATIENT
  Sex: Female

DRUGS (1)
  1. DUPIXENT [Suspect]
     Active Substance: DUPILUMAB
     Indication: SINUSITIS
     Dosage: 300 MG, QOW
     Route: 058

REACTIONS (4)
  - Pain [Unknown]
  - Mass [Unknown]
  - Product use in unapproved indication [Unknown]
  - Contusion [Unknown]
